FAERS Safety Report 6387951-6 (Version None)
Quarter: 2009Q4

REPORT INFORMATION
  Report Type: 
  Country: None (occurrence: None)
  Receive Date: 20091005
  Receipt Date: 20090928
  Transmission Date: 20100525
  Serious: Yes (Other)
  Sender: FDA-Public Use
  Company Number: GB-PFIZER INC-2009243427

PATIENT
  Age: 23 Year

DRUGS (3)
  1. FLUCONAZOLE [Suspect]
     Indication: ANTIFUNGAL PROPHYLAXIS
     Dosage: 100 MG, 1X/DAY
  2. FLUCONAZOLE [Suspect]
     Indication: AUTOIMMUNE HEPATITIS
  3. PREDNISOLONE AND PREDNISOLONE STEAGLATE [Suspect]
     Indication: AUTOIMMUNE HEPATITIS
     Dosage: 20 MG, 1X/DAY

REACTIONS (1)
  - STEVENS-JOHNSON SYNDROME [None]
